FAERS Safety Report 21083745 (Version 1)
Quarter: 2022Q3

REPORT INFORMATION
  Report Type: Spontaneous
  Country: US (occurrence: US)
  Receive Date: 20220714
  Receipt Date: 20220714
  Transmission Date: 20221026
  Serious: No
  Sender: FDA-Public Use
  Company Number: US-JAZZ-2022-US-012525

PATIENT
  Sex: Female

DRUGS (4)
  1. EPIDIOLEX [Suspect]
     Active Substance: CANNABIDIOL
     Indication: Product used for unknown indication
     Route: 048
  2. SABRIL [Concomitant]
     Active Substance: VIGABATRIN
  3. EVEROLIMUS [Concomitant]
     Active Substance: EVEROLIMUS
  4. ONFI [Concomitant]
     Active Substance: CLOBAZAM

REACTIONS (2)
  - Feeling abnormal [Unknown]
  - Lethargy [Unknown]
